FAERS Safety Report 6530850-7 (Version None)
Quarter: 2010Q1

REPORT INFORMATION
  Report Type: 
  Country: None (occurrence: None)
  Receive Date: 20100108
  Receipt Date: 20090427
  Transmission Date: 20100710
  Serious: No
  Sender: FDA-Public Use
  Company Number: A0777583A

PATIENT
  Age: 68 Year
  Sex: Female
  Weight: 61.4 kg

DRUGS (12)
  1. LOVAZA [Suspect]
     Dosage: 2CAP TWICE PER DAY
     Route: 048
     Dates: start: 20090404
  2. MULTI-VITAMIN [Concomitant]
  3. MELOXICAM [Concomitant]
  4. CITALOPRAM HYDROBROMIDE [Concomitant]
  5. PREVACID [Concomitant]
  6. LASIX [Concomitant]
  7. SIMVASTATIN [Concomitant]
  8. POTASSIUM CHLORIDE [Concomitant]
  9. BACLOFEN [Concomitant]
  10. DIFLUCAN [Concomitant]
  11. MIRALAX [Concomitant]
  12. TYLENOL (CAPLET) [Concomitant]

REACTIONS (4)
  - ADVERSE EVENT [None]
  - BLOOD URINE PRESENT [None]
  - CHROMATURIA [None]
  - URINE ABNORMALITY [None]
